FAERS Safety Report 18634425 (Version 2)
Quarter: 2022Q1

REPORT INFORMATION
  Report Type: Spontaneous
  Country: US (occurrence: US)
  Receive Date: 20201218
  Receipt Date: 20220205
  Transmission Date: 20220423
  Serious: No
  Sender: FDA-Public Use
  Company Number: US-BIOGEN-2020BI00958534

PATIENT
  Sex: Female

DRUGS (1)
  1. TECFIDERA [Suspect]
     Active Substance: DIMETHYL FUMARATE
     Indication: Multiple sclerosis
     Route: 065

REACTIONS (11)
  - Drug ineffective [Unknown]
  - Headache [Unknown]
  - Rash pruritic [Unknown]
  - Dizziness [Unknown]
  - Nausea [Unknown]
  - Hypersensitivity [Unknown]
  - Hot flush [Unknown]
  - Diarrhoea [Unknown]
  - Vomiting [Unknown]
  - Abdominal pain [Unknown]
  - Dyspepsia [Recovered/Resolved]
